FAERS Safety Report 15880663 (Version 1)
Quarter: 2019Q1

REPORT INFORMATION
  Report Type: Spontaneous
  Country: US (occurrence: US)
  Receive Date: 20190128
  Receipt Date: 20190128
  Transmission Date: 20190417
  Serious: Yes (Other)
  Sender: FDA-Public Use
  Company Number: None

PATIENT
  Age: 71 Year
  Sex: Female
  Weight: 58.5 kg

DRUGS (5)
  1. IRBESARTAN. [Concomitant]
     Active Substance: IRBESARTAN
  2. ASPIRIN. [Concomitant]
     Active Substance: ASPIRIN
  3. COREG [Concomitant]
     Active Substance: CARVEDILOL
  4. CRESTOR [Concomitant]
     Active Substance: ROSUVASTATIN CALCIUM
  5. TROPIPHEN EYE DROPS [Suspect]
     Active Substance: PHENYLEPHRINE HYDROCHLORIDE\TROPICAMIDE
     Indication: PUPIL DILATION PROCEDURE
     Dosage: OTHER FREQUENCY:1 DROP EACH EYE;?
     Route: 047
     Dates: start: 20190125, end: 20190126

REACTIONS (4)
  - Vision blurred [None]
  - Eye pruritus [None]
  - Eye irritation [None]
  - Swelling of eyelid [None]

NARRATIVE: CASE EVENT DATE: 20190125
